FAERS Safety Report 13489066 (Version 2)
Quarter: 2017Q2

REPORT INFORMATION
  Report Type: Report from Study
  Country: US (occurrence: US)
  Receive Date: 20170427
  Receipt Date: 20170629
  Transmission Date: 20170830
  Serious: Yes (Hospitalization)
  Sender: FDA-Public Use
  Company Number: US-SA-2017SA074858

PATIENT
  Age: 24 Year
  Sex: Male
  Weight: 79.8 kg

DRUGS (1)
  1. LEMTRADA [Suspect]
     Active Substance: ALEMTUZUMAB
     Indication: MULTIPLE SCLEROSIS
     Route: 041
     Dates: start: 20170418, end: 20170418

REACTIONS (4)
  - Lethargy [Recovered/Resolved]
  - Vital functions abnormal [Unknown]
  - Unresponsive to stimuli [Unknown]
  - Chills [Unknown]

NARRATIVE: CASE EVENT DATE: 20170418
